FAERS Safety Report 23693823 (Version 2)
Quarter: 2024Q2

REPORT INFORMATION
  Report Type: Spontaneous
  Country: PT (occurrence: PT)
  Receive Date: 20240401
  Receipt Date: 20240521
  Transmission Date: 20240716
  Serious: Yes (Other)
  Sender: FDA-Public Use
  Company Number: PT-AMGEN-PRTSP2024062348

PATIENT

DRUGS (1)
  1. ADALIMUMAB [Suspect]
     Active Substance: ADALIMUMAB\ISOPROPYL ALCOHOL
     Indication: Behcet^s syndrome
     Dosage: UNK
     Route: 065

REACTIONS (4)
  - Cardiac ventricular thrombosis [Unknown]
  - Cerebral venous thrombosis [Unknown]
  - Deep vein thrombosis [Unknown]
  - Off label use [Unknown]
